FAERS Safety Report 4768786-4 (Version None)
Quarter: 2005Q3

REPORT INFORMATION
  Report Type: 
  Country: None (occurrence: None)
  Receive Date: 20050914
  Receipt Date: 20050803
  Transmission Date: 20060218
  Serious: Yes (Other)
  Sender: FDA-Public Use
  Company Number: 200516103US

PATIENT
  Sex: Female
  Weight: 68 kg

DRUGS (20)
  1. LANTUS [Suspect]
     Indication: DIABETES MELLITUS NON-INSULIN-DEPENDENT
     Dosage: DOSE UNIT: UNITS
     Dates: start: 20050701
  2. OPTICLIK (INSULIN INJECTION PEN) [Suspect]
     Indication: DIABETES MELLITUS NON-INSULIN-DEPENDENT
     Dosage: DOSE: NOT PROVIDED
     Dates: start: 20050701
  3. TOPROL-XL [Concomitant]
  4. LANOXIN [Concomitant]
  5. LASIX [Concomitant]
  6. KLOR-CON [Concomitant]
  7. ASPIRIN [Concomitant]
  8. LEVOXYL [Concomitant]
  9. PREVACID [Concomitant]
  10. EXELON [Concomitant]
  11. VITAMIN B COMPLEX CAP [Concomitant]
     Dosage: DOSE: ONE
     Route: 048
  12. MULTIVITAMINS, PLAIN [Concomitant]
     Dosage: DOSE: ONE
     Route: 048
  13. VITAMIN E [Concomitant]
  14. FERROUS SULFATE [Concomitant]
  15. WELLBUTRIN [Concomitant]
  16. TRILEPTAL [Concomitant]
  17. LIPITOR [Concomitant]
  18. NOVOLOG MIX 70/30 [Concomitant]
     Dosage: DOSE: 30U QAM, 10U LUNCH, 20U QPM
  19. BENICAR                                 /USA/ [Concomitant]
  20. OSCAL [Concomitant]

REACTIONS (11)
  - BLOOD GLUCOSE INCREASED [None]
  - CHILLS [None]
  - DEHYDRATION [None]
  - DIARRHOEA [None]
  - GASTROENTERITIS VIRAL [None]
  - HYPERGLYCAEMIA [None]
  - MALAISE [None]
  - NAUSEA [None]
  - ORAL INTAKE REDUCED [None]
  - VOMITING [None]
  - WHITE BLOOD CELL COUNT INCREASED [None]
